FAERS Safety Report 4534411-0 (Version None)
Quarter: 2004Q4

REPORT INFORMATION
  Report Type: 
  Country: None (occurrence: None)
  Receive Date: 20041222
  Receipt Date: 20041216
  Transmission Date: 20050328
  Serious: Yes (Death, Other)
  Sender: FDA-Public Use
  Company Number: US-JNJFOC-20041204907

PATIENT
  Age: 35 Year
  Sex: Male

DRUGS (1)
  1. DURAGESIC [Suspect]
     Indication: DRUG USE FOR UNKNOWN INDICATION
     Dosage: TWO 100 UG/HR PATCHES
     Route: 050

REACTIONS (4)
  - DRUG ABUSER [None]
  - MEDICATION ERROR [None]
  - OVERDOSE [None]
  - SELF-MEDICATION [None]
